FAERS Safety Report 11741444 (Version 1)
Quarter: 2015Q4

REPORT INFORMATION
  Report Type: Spontaneous
  Country: US (occurrence: US)
  Receive Date: 20151116
  Receipt Date: 20151116
  Transmission Date: 20160304
  Serious: No
  Sender: FDA-Public Use
  Company Number: US-ASTRAZENECA-2015SE85121

PATIENT
  Age: 41 Year
  Sex: Female
  Weight: 119.3 kg

DRUGS (3)
  1. SEROQUEL [Suspect]
     Active Substance: QUETIAPINE FUMARATE
     Indication: BIPOLAR DISORDER
     Dosage: 200 MG DAILY (SEROQUEL XR)
     Route: 048
     Dates: start: 201507, end: 2015
  2. SEROQUEL [Suspect]
     Active Substance: QUETIAPINE FUMARATE
     Indication: BIPOLAR DISORDER
     Dosage: 200 MG, DAILY (QUETIAPINE OR SEROQUEL IR)
     Route: 048
     Dates: start: 201507, end: 2015
  3. SEROQUEL [Suspect]
     Active Substance: QUETIAPINE FUMARATE
     Indication: BIPOLAR DISORDER
     Route: 048
     Dates: start: 20130709, end: 20150812

REACTIONS (3)
  - Hypokalaemia [Unknown]
  - Electrocardiogram QT prolonged [Unknown]
  - Syncope [Unknown]

NARRATIVE: CASE EVENT DATE: 2015
